FAERS Safety Report 5906834-6 (Version None)
Quarter: 2008Q3

REPORT INFORMATION
  Report Type: 
  Country: None (occurrence: None)
  Receive Date: 20080929
  Receipt Date: 20080923
  Transmission Date: 20090109
  Serious: Yes (Life-Threatening)
  Sender: FDA-Public Use
  Company Number: 2008AL009984

PATIENT
  Age: 76 Year
  Sex: Female
  Weight: 63.5036 kg

DRUGS (1)
  1. DIGOXIN [Suspect]
     Indication: CARDIAC DISORDER
     Dosage: 0.25MG, DAILY, PO
     Route: 048
     Dates: start: 20000101

REACTIONS (10)
  - ASTHENIA [None]
  - CEREBROVASCULAR ACCIDENT [None]
  - CLOSTRIDIUM DIFFICILE COLITIS [None]
  - DEHYDRATION [None]
  - DIARRHOEA [None]
  - DIZZINESS [None]
  - HYPOPHAGIA [None]
  - NAUSEA [None]
  - OVERDOSE [None]
  - VOMITING [None]
